FAERS Safety Report 12008150 (Version 1)
Quarter: 2016Q1

REPORT INFORMATION
  Report Type: Report from Study
  Country: US (occurrence: US)
  Receive Date: 20160205
  Receipt Date: 20160205
  Transmission Date: 20160526
  Serious: No
  Sender: FDA-Public Use
  Company Number: US-ABBVIE-15K-163-1442494-00

PATIENT
  Sex: Female
  Weight: 57.66 kg

DRUGS (9)
  1. HUMIRA [Suspect]
     Active Substance: ADALIMUMAB
     Indication: COLITIS ULCERATIVE
     Route: 065
     Dates: start: 20140424, end: 20140424
  2. VSL 3 [Concomitant]
     Indication: PROBIOTIC THERAPY
  3. HUMIRA [Suspect]
     Active Substance: ADALIMUMAB
     Route: 065
     Dates: start: 20140508, end: 20140508
  4. PREDNISONE. [Concomitant]
     Active Substance: PREDNISONE
     Indication: COLITIS ULCERATIVE
  5. HUMIRA [Suspect]
     Active Substance: ADALIMUMAB
     Route: 065
     Dates: start: 20140522
  6. HUMIRA [Suspect]
     Active Substance: ADALIMUMAB
     Route: 065
  7. CANASA [Concomitant]
     Active Substance: MESALAMINE
     Indication: COLITIS ULCERATIVE
  8. EFFEXOR [Concomitant]
     Active Substance: VENLAFAXINE HYDROCHLORIDE
     Indication: DEPRESSION
  9. PREMPRO [Concomitant]
     Active Substance: ESTROGENS, CONJUGATED\MEDROXYPROGESTERONE ACETATE
     Indication: HORMONE REPLACEMENT THERAPY

REACTIONS (6)
  - Proctitis [Not Recovered/Not Resolved]
  - Drug effect decreased [Not Recovered/Not Resolved]
  - Pouchitis [Not Recovered/Not Resolved]
  - Proctalgia [Not Recovered/Not Resolved]
  - Hot flush [Not Recovered/Not Resolved]
  - Alopecia [Not Recovered/Not Resolved]

NARRATIVE: CASE EVENT DATE: 2014
